FAERS Safety Report 4993268-4 (Version None)
Quarter: 2006Q1

REPORT INFORMATION
  Report Type: 
  Country: None (occurrence: None)
  Receive Date: 20060314
  Receipt Date: 20050601
  Transmission Date: 20060701
  Serious: Yes (Other)
  Sender: FDA-Public Use
  Company Number: 200511511BCC

PATIENT
  Age: 55 Year
  Sex: Male
  Weight: 61.6892 kg

DRUGS (11)
  1. ALEVE (CAPLET) [Suspect]
     Indication: DENTAL OPERATION
     Dosage: 220 MG, PRN, ORAL
     Route: 048
     Dates: start: 20050101
  2. ALEVE (CAPLET) [Suspect]
     Indication: POST HERPETIC NEURALGIA
     Dosage: 220 MG, PRN, ORAL
     Route: 048
     Dates: start: 20050101
  3. VANCOMYCIN [Concomitant]
  4. NORVASC [Concomitant]
  5. HYDROCHLOROTHIAZIDE [Concomitant]
  6. VALTRAX [Concomitant]
  7. NEURONTIN [Concomitant]
  8. LIPITOR [Concomitant]
  9. FLAXSEED OIL [Concomitant]
  10. SALMON OIL [Concomitant]
  11. ANTIBIOTICS [Concomitant]

REACTIONS (2)
  - CLOSTRIDIUM COLITIS [None]
  - IRRITABLE BOWEL SYNDROME [None]
